FAERS Safety Report 6872230-0 (Version None)
Quarter: 2010Q3

REPORT INFORMATION
  Report Type: 
  Country: None (occurrence: None)
  Receive Date: 20100721
  Receipt Date: 20090316
  Transmission Date: 20110219
  Serious: No
  Sender: FDA-Public Use
  Company Number: WAES 0911USA02177

PATIENT
  Age: 75 Year
  Sex: Male

DRUGS (2)
  1. PROSCAR [Suspect]
     Indication: BENIGN PROSTATIC HYPERPLASIA
     Dosage: 5 MG/ DAILY/ PO
     Route: 048
     Dates: start: 20081101
  2. WARFARIN [Concomitant]

REACTIONS (1)
  - GYNAECOMASTIA [None]
